FAERS Safety Report 7579353-1 (Version None)
Quarter: 2011Q2

REPORT INFORMATION
  Report Type: 
  Country: None (occurrence: None)
  Receive Date: 20110628
  Receipt Date: 20110623
  Transmission Date: 20111010
  Serious: Yes (Hospitalization)
  Sender: FDA-Public Use
  Company Number: JP-BRISTOL-MYERS SQUIBB COMPANY-15853260

PATIENT
  Age: 87 Year

DRUGS (1)
  1. BARACLUDE [Suspect]
     Route: 048
     Dates: end: 20110622

REACTIONS (4)
  - CONSTIPATION [None]
  - ABDOMINAL DISTENSION [None]
  - OVERDOSE [None]
  - ABDOMINAL PAIN [None]
